APPROVED DRUG PRODUCT: BRETHAIRE
Active Ingredient: TERBUTALINE SULFATE
Strength: 0.2MG/INH
Dosage Form/Route: AEROSOL, METERED;INHALATION
Application: N018762 | Product #001
Applicant: NOVARTIS PHARMACEUTICALS CORP
Approved: Aug 17, 1984 | RLD: No | RS: No | Type: DISCN